FAERS Safety Report 6647263-X (Version None)
Quarter: 2010Q1

REPORT INFORMATION
  Report Type: 
  Country: None (occurrence: None)
  Receive Date: 20100323
  Receipt Date: 20100310
  Transmission Date: 20100710
  Serious: Yes (Other)
  Sender: FDA-Public Use
  Company Number: A0850943A

PATIENT
  Sex: Female

DRUGS (2)
  1. LAMICTAL CD [Suspect]
     Indication: CONVULSION PROPHYLAXIS
     Route: 065
  2. LAMICTAL XR [Suspect]
     Indication: CONVULSION PROPHYLAXIS
     Route: 048

REACTIONS (4)
  - ACNE [None]
  - CONVULSION [None]
  - INFLUENZA [None]
  - VOMITING [None]
